FAERS Safety Report 12842719 (Version 1)
Quarter: 2016Q4

REPORT INFORMATION
  Report Type: Spontaneous
  Country: US (occurrence: US)
  Receive Date: 20161012
  Receipt Date: 20161012
  Transmission Date: 20170207
  Serious: Yes (Hospitalization)
  Sender: FDA-Public Use
  Company Number: None

PATIENT
  Age: 60 Year
  Sex: Female
  Weight: 75.93 kg

DRUGS (19)
  1. CETUXIMAB [Suspect]
     Active Substance: CETUXIMAB
     Indication: SQUAMOUS CELL CARCINOMA OF HEAD AND NECK
     Dosage: CETUXIMAB 250 MG/M2 - INTRAVENOUSLY - WEEKLY
     Route: 042
     Dates: start: 20160824, end: 20160914
  2. CYMBALTA (DULOXETINE HCI) [Concomitant]
  3. XANAX [Concomitant]
     Active Substance: ALPRAZOLAM
  4. MAGNESIUM OXIDE. [Concomitant]
     Active Substance: MAGNESIUM OXIDE
  5. PREDNISONE. [Concomitant]
     Active Substance: PREDNISONE
  6. FENTANYL. [Concomitant]
     Active Substance: FENTANYL
  7. OXYCODONE HCI [Concomitant]
  8. POTASSIUM CHLORIDE. [Concomitant]
     Active Substance: POTASSIUM CHLORIDE
  9. LISINOPRIL. [Concomitant]
     Active Substance: LISINOPRIL
  10. MINOCYCLINE HCI [Concomitant]
  11. PALBOCICLIB [Suspect]
     Active Substance: PALBOCICLIB
     Indication: SQUAMOUS CELL CARCINOMA OF HEAD AND NECK
     Dosage: PALBOCICLIB 125 MG - PO - QD DAYS 1-21
     Route: 048
     Dates: start: 20160824, end: 20160913
  12. COMPAZINE [Concomitant]
     Active Substance: PROCHLORPERAZINE MALEATE
  13. FAMOTIDINE. [Concomitant]
     Active Substance: FAMOTIDINE
  14. TRIAMCINOLONE ACETONIDE. [Concomitant]
     Active Substance: TRIAMCINOLONE ACETONIDE
  15. AMOXICILLIN-POT-CALVULANATE [Concomitant]
  16. BENZONATATE. [Concomitant]
     Active Substance: BENZONATATE
  17. DEXAMETHASONE. [Concomitant]
     Active Substance: DEXAMETHASONE
  18. PROCHLORPERAZINE MALEATE (COMPAZINE) [Concomitant]
  19. TEMAZEPAM. [Concomitant]
     Active Substance: TEMAZEPAM

REACTIONS (12)
  - Agitation [None]
  - Metastases to spine [None]
  - Lethargy [None]
  - Pneumonia [None]
  - Mental status changes [None]
  - Fall [None]
  - Somnolence [None]
  - Back pain [None]
  - Urinary retention [None]
  - Malignant neoplasm progression [None]
  - Confusional state [None]
  - Pain [None]

NARRATIVE: CASE EVENT DATE: 20160926
